FAERS Safety Report 18776909 (Version 1)
Quarter: 2021Q1

REPORT INFORMATION
  Report Type: Spontaneous
  Country: GB (occurrence: GB)
  Receive Date: 20210122
  Receipt Date: 20210122
  Transmission Date: 20210419
  Serious: Yes (Disabling, Other)
  Sender: FDA-Public Use
  Company Number: GB-MYLANLABS-2021M1003864

PATIENT
  Age: 68 Year
  Sex: Female
  Weight: 69.85 kg

DRUGS (7)
  1. CIPROFLOXACIN. [Suspect]
     Active Substance: CIPROFLOXACIN
     Dosage: UNK
     Route: 048
  2. CRANBERRY                          /01512301/ [Concomitant]
     Active Substance: CRANBERRY
     Dosage: UNK
  3. GLUCOSAMINE [Concomitant]
     Active Substance: GLUCOSAMINE
     Dosage: UNK
  4. VITAMIN D                          /00107901/ [Concomitant]
     Active Substance: ERGOCALCIFEROL
     Dosage: UNK
  5. CIPROFLOXACIN. [Suspect]
     Active Substance: CIPROFLOXACIN
     Indication: CYSTITIS
     Dosage: 1 DOSAGE FORM, BID
     Route: 048
     Dates: start: 20201213, end: 20201217
  6. OPTIFLEX C [Concomitant]
     Dosage: UNK
  7. VITAMIN B COMPOUND                 /00003501/ [Concomitant]
     Dosage: UNK

REACTIONS (8)
  - Gastrointestinal inflammation [Recovered/Resolved with Sequelae]
  - Pollakiuria [Unknown]
  - Frequent bowel movements [Unknown]
  - Sensitive skin [Unknown]
  - Blood urine present [Unknown]
  - Bladder pain [Unknown]
  - Vulvovaginal inflammation [Recovered/Resolved with Sequelae]
  - Pelvic pain [Unknown]

NARRATIVE: CASE EVENT DATE: 20201215
